FAERS Safety Report 4502061-8 (Version None)
Quarter: 2004Q4

REPORT INFORMATION
  Report Type: 
  Country: None (occurrence: None)
  Receive Date: 20041116
  Receipt Date: 20030605
  Transmission Date: 20050328
  Serious: Yes (Hospitalization, Other)
  Sender: FDA-Public Use
  Company Number: US-MERCK-0306USA00852

PATIENT
  Age: 66 Year
  Sex: Male
  Weight: 74 kg

DRUGS (14)
  1. VIOXX [Suspect]
     Route: 048
     Dates: start: 20000504, end: 20020801
  2. VIOXX [Suspect]
     Route: 048
     Dates: start: 20000425, end: 20020801
  3. CELEBREX [Concomitant]
     Route: 048
  4. DARVOCET-N 100 [Concomitant]
     Route: 065
  5. AMBIEN [Concomitant]
     Route: 065
  6. TOPROL-XL [Concomitant]
     Route: 065
  7. FLORONE [Concomitant]
     Route: 065
  8. FLEXERIL [Concomitant]
     Route: 065
  9. ASPIRIN [Concomitant]
     Route: 065
  10. SERZONE [Concomitant]
     Route: 065
  11. PRILOSEC [Concomitant]
     Route: 065
  12. GLUCOTROL XL [Concomitant]
     Route: 065
  13. ZESTRIL [Concomitant]
     Route: 065
  14. LIPITOR [Concomitant]
     Route: 065

REACTIONS (19)
  - ACUTE MYOCARDIAL INFARCTION [None]
  - ADVERSE EVENT [None]
  - ARTHRITIS [None]
  - ATRIOVENTRICULAR BLOCK [None]
  - BACK PAIN [None]
  - BLOOD PRESSURE SYSTOLIC INCREASED [None]
  - BRONCHITIS [None]
  - CEREBROVASCULAR ACCIDENT [None]
  - CORONARY ARTERY DISEASE [None]
  - COUGH [None]
  - DYSPNOEA [None]
  - FACET JOINT SYNDROME [None]
  - FATIGUE [None]
  - GASTROENTERITIS VIRAL [None]
  - INTERMITTENT CLAUDICATION [None]
  - PALPITATIONS [None]
  - SERUM SEROTONIN DECREASED [None]
  - SPINAL COLUMN STENOSIS [None]
  - SYNCOPE [None]
